FAERS Safety Report 17581861 (Version 1)
Quarter: 2020Q1

REPORT INFORMATION
  Report Type: Spontaneous
  Country: FR (occurrence: FR)
  Receive Date: 20200325
  Receipt Date: 20200325
  Transmission Date: 20200409
  Serious: Yes (Hospitalization)
  Sender: FDA-Public Use
  Company Number: FR-SAMSUNG BIOEPIS-SB-2020-06037

PATIENT
  Age: 40 Year
  Sex: Female

DRUGS (2)
  1. BENEPALI [Suspect]
     Active Substance: ETANERCEPT
     Indication: ANKYLOSING SPONDYLITIS
     Route: 058
     Dates: start: 20191210
  2. BENEPALI [Suspect]
     Active Substance: ETANERCEPT
     Dosage: UNKNOWN
     Route: 065

REACTIONS (7)
  - Injection site pruritus [Recovering/Resolving]
  - Wrong technique in product usage process [Not Recovered/Not Resolved]
  - Injection site swelling [Recovering/Resolving]
  - Device issue [Not Recovered/Not Resolved]
  - Renal failure [Unknown]
  - Injection site warmth [Recovering/Resolving]
  - Injection site erythema [Recovering/Resolving]

NARRATIVE: CASE EVENT DATE: 20191224
